FAERS Safety Report 8294391-1 (Version None)
Quarter: 2012Q2

REPORT INFORMATION
  Report Type: 
  Country: None (occurrence: None)
  Receive Date: 20120416
  Receipt Date: 20120412
  Transmission Date: 20120825
  Serious: Yes (Hospitalization, Other)
  Sender: FDA-Public Use
  Company Number: ADR-2011-11099

PATIENT
  Sex: Male

DRUGS (3)
  1. LIORESAL [Suspect]
     Indication: MUSCLE SPASTICITY
     Dosage: MCG, DAILY, INTRATH
     Route: 037
  2. DILAUDID [Concomitant]
  3. CLONIDINE INTRATHECAL [Concomitant]

REACTIONS (4)
  - OEDEMA PERIPHERAL [None]
  - DEVICE ALARM ISSUE [None]
  - CELLULITIS [None]
  - INFECTION [None]
